FAERS Safety Report 9856934 (Version 3)
Quarter: 2014Q3

REPORT INFORMATION
  Report Type: Spontaneous
  Country: US (occurrence: US)
  Receive Date: 20140130
  Receipt Date: 20140923
  Transmission Date: 20150326
  Serious: Yes (Hospitalization, Other)
  Sender: FDA-Public Use
  Company Number: US-009507513-1401USA014216

PATIENT
  Sex: Female

DRUGS (1)
  1. NUVARING [Suspect]
     Active Substance: ETHINYL ESTRADIOL\ETONOGESTREL
     Indication: CONTRACEPTION
     Dosage: UNK
     Route: 067
     Dates: end: 20101210

REACTIONS (9)
  - Drug dependence [Unknown]
  - Depression [Unknown]
  - Post-traumatic stress disorder [Unknown]
  - Hyperglycaemia [Unknown]
  - Anxiety [Unknown]
  - Endometriosis [Unknown]
  - Pneumonia [Unknown]
  - Pulmonary embolism [Unknown]
  - Insomnia [Unknown]

NARRATIVE: CASE EVENT DATE: 20101128
